FAERS Safety Report 4654885-4 (Version None)
Quarter: 2005Q2

REPORT INFORMATION
  Report Type: 
  Country: None (occurrence: None)
  Receive Date: 20050506
  Receipt Date: 20050428
  Transmission Date: 20051028
  Serious: Yes (Other)
  Sender: FDA-Public Use
  Company Number: JP-MERCK-0505USA00136

PATIENT
  Age: 68 Year
  Sex: Male

DRUGS (6)
  1. PEPCID [Suspect]
     Indication: PROPHYLAXIS
     Route: 042
     Dates: start: 20040514, end: 20040516
  2. PEPCID [Suspect]
     Route: 048
     Dates: start: 20040515, end: 20040601
  3. HEPARIN [Concomitant]
     Indication: ACUTE MYOCARDIAL INFARCTION
     Route: 042
     Dates: start: 20040501
  4. ASPIRIN [Concomitant]
     Indication: ACUTE MYOCARDIAL INFARCTION
     Route: 048
     Dates: start: 20040501
  5. TICLOPIDINE HYDROCHLORIDE [Suspect]
     Indication: ACUTE MYOCARDIAL INFARCTION
     Route: 048
     Dates: start: 20040501, end: 20040601
  6. CILOSTAZOL [Concomitant]
     Indication: ACUTE MYOCARDIAL INFARCTION
     Route: 048
     Dates: start: 20040501, end: 20040501

REACTIONS (7)
  - ACUTE RESPIRATORY DISTRESS SYNDROME [None]
  - GRANULOCYTE COUNT INCREASED [None]
  - GRANULOCYTOPENIA [None]
  - LEUKOPENIA [None]
  - PURPURA [None]
  - PYREXIA [None]
  - THROMBOCYTOPENIA [None]
